FAERS Safety Report 4317386-9 (Version None)
Quarter: 2004Q1

REPORT INFORMATION
  Report Type: 
  Country: None (occurrence: None)
  Receive Date: 20040312
  Receipt Date: 20040302
  Transmission Date: 20041129
  Serious: Yes (Hospitalization, Other)
  Sender: FDA-Public Use
  Company Number: HQWYE553404MAR04

PATIENT
  Age: 50 Year
  Sex: Male

DRUGS (14)
  1. PROGRAF [Suspect]
     Indication: PROPHYLAXIS AGAINST TRANSPLANT REJECTION
     Dosage: 3 MG 1X PER 1 DAY ORAL
     Route: 048
     Dates: start: 19970522
  2. PREDNISONE [Suspect]
     Indication: PROPHYLAXIS AGAINST TRANSPLANT REJECTION
     Dosage: 5 MG 1X PER 1 DAY
     Dates: start: 20030617
  3. ASPEGIC 1000 [Concomitant]
  4. CORVASAL (MOLSIDOMINE) [Concomitant]
  5. INSULATARD NPH HUMAN [Concomitant]
  6. ACTRAPID MC (INSULIN) [Concomitant]
  7. LASIX [Concomitant]
  8. FENOFIBRATE [Concomitant]
  9. ICAZ (ISRADIPINE) [Concomitant]
  10. CELLCEPT [Concomitant]
  11. VELITEN (RUTIN/VITAMIN C/VITAMIN E) [Concomitant]
  12. FLIXONASE (FLUTICASONE PROPIONATE) [Concomitant]
  13. DUXIL (ALMITRINE DIMESILATE/RAUBASINE) [Concomitant]
  14. EUPRESSYL(URAPIDIL) [Concomitant]

REACTIONS (1)
  - DIABETES MELLITUS INADEQUATE CONTROL [None]
